FAERS Safety Report 14469063 (Version 14)
Quarter: 2018Q3

REPORT INFORMATION
  Report Type: Report from Study
  Country: GB (occurrence: GB)
  Receive Date: 20180131
  Receipt Date: 20180827
  Transmission Date: 20181010
  Serious: Yes (Hospitalization, Other)
  Sender: FDA-Public Use
  Company Number: GB-PFIZER INC-2018038290

PATIENT
  Age: 30 Year
  Sex: Male

DRUGS (13)
  1. KEPIVANCE [Suspect]
     Active Substance: PALIFERMIN
     Indication: ACUTE LYMPHOCYTIC LEUKAEMIA
     Dosage: UNK
  2. ETOPOSIDE. [Suspect]
     Active Substance: ETOPOSIDE
     Indication: ACUTE LYMPHOCYTIC LEUKAEMIA
     Dosage: 223 MG, UNK
     Route: 042
     Dates: start: 20170821, end: 20170825
  3. ATRIANCE [Suspect]
     Active Substance: NELARABINE
     Dosage: UNK
  4. GRANULOCYTE COLONY STIMULATING FACTOR [Concomitant]
     Active Substance: GRANULOCYTE COLONY-STIMULATING FACTOR NOS
     Indication: NEUTROPENIA
     Dosage: UNK
  5. ANTITHROMBIN ALFA [Concomitant]
     Active Substance: ANTITHROMBIN ALFA
     Indication: PROPHYLAXIS
     Dosage: UNK
  6. METHOTREXATE SODIUM. [Suspect]
     Active Substance: METHOTREXATE SODIUM
     Indication: ACUTE LYMPHOCYTIC LEUKAEMIA
     Dosage: 12.5 MG, UNK
     Route: 037
     Dates: start: 20170822, end: 20170822
  7. ONCASPAR [Suspect]
     Active Substance: PEGASPARGASE
     Indication: ACUTE LYMPHOCYTIC LEUKAEMIA
     Dosage: 2230 IU, UNK
     Route: 042
     Dates: start: 20170821, end: 20170825
  8. MABTHERA [Suspect]
     Active Substance: RITUXIMAB
     Indication: ACUTE LYMPHOCYTIC LEUKAEMIA
     Dosage: 800 MG, UNK
     Route: 042
     Dates: start: 20170511, end: 20170601
  9. DOMPERIDONE [Concomitant]
     Active Substance: DOMPERIDONE
     Indication: PROPHYLAXIS
     Dosage: UNK
  10. MERCAPTOPURINE. [Suspect]
     Active Substance: MERCAPTOPURINE
     Indication: ACUTE LYMPHOCYTIC LEUKAEMIA
     Dosage: 150 MG, 1X/DAY
     Route: 048
     Dates: start: 20170814, end: 20170910
  11. ONDANSETRON [Concomitant]
     Active Substance: ONDANSETRON
     Indication: PROPHYLAXIS
     Dosage: 4 MG, AS NEEDED (AS REQUIRED)
     Route: 042
     Dates: start: 20170913
  12. CYTARABINE. [Suspect]
     Active Substance: CYTARABINE
     Indication: ACUTE LYMPHOCYTIC LEUKAEMIA
     Dosage: 167 MG, UNK
     Route: 042
     Dates: start: 20170821, end: 20170825
  13. METHOTREXATE SODIUM. [Suspect]
     Active Substance: METHOTREXATE SODIUM
     Indication: ACUTE LYMPHOCYTIC LEUKAEMIA
     Dosage: 45 MG, WEEKLY
     Route: 048
     Dates: start: 20170814, end: 20170910

REACTIONS (3)
  - Dyspnoea [Unknown]
  - Pulmonary embolism [Recovered/Resolved with Sequelae]
  - Tachycardia [Unknown]

NARRATIVE: CASE EVENT DATE: 20170911
